FAERS Safety Report 5030949-0 (Version None)
Quarter: 2006Q2

REPORT INFORMATION
  Report Type: 
  Country: None (occurrence: None)
  Receive Date: 20060615
  Receipt Date: 20060607
  Transmission Date: 20061013
  Serious: Yes (Other)
  Sender: FDA-Public Use
  Company Number: 2006BH010677

PATIENT
  Sex: Female

DRUGS (2)
  1. SUPRANE [Suspect]
     Indication: LAPAROTOMY
  2. REMIFENTANIL [Concomitant]

REACTIONS (2)
  - LARYNGOSPASM [None]
  - POST PROCEDURAL COMPLICATION [None]
